FAERS Safety Report 9162896 (Version 2)
Quarter: 2013Q2

REPORT INFORMATION
  Report Type: Spontaneous
  Country: PT (occurrence: PT)
  Receive Date: 20130314
  Receipt Date: 20130417
  Transmission Date: 20140414
  Serious: Yes (Other)
  Sender: FDA-Public Use
  Company Number: PT-JNJFOC-20130304177

PATIENT
  Age: 29 Year
  Sex: Female

DRUGS (2)
  1. SIMPONI [Suspect]
     Indication: SPONDYLOARTHROPATHY
     Dosage: START DATE: APPROXIMATELY 1 YEAR PRIOR TO THE DATE OF REPORT
     Route: 058
     Dates: start: 2012
  2. NSAID [Concomitant]
     Route: 065

REACTIONS (3)
  - Anal fissure [Unknown]
  - Crohn^s disease [Not Recovered/Not Resolved]
  - Off label use [Unknown]
